FAERS Safety Report 25158578 (Version 1)
Quarter: 2025Q2

REPORT INFORMATION
  Report Type: Spontaneous
  Country: US (occurrence: US)
  Receive Date: 20250404
  Receipt Date: 20250404
  Transmission Date: 20250716
  Serious: Yes (Hospitalization, Other)
  Sender: CSL BEHRING
  Company Number: US-BEH-2025200944

PATIENT
  Sex: Female

DRUGS (1)
  1. CORIFACT [Suspect]
     Active Substance: FACTOR XIII CONCENTRATE (HUMAN)
     Indication: Haemophilia
     Dosage: 2832 IU, QMT (STRENGTH::1000-1600)
     Route: 042
     Dates: start: 202104

REACTIONS (1)
  - Nephrolithiasis [Unknown]
